FAERS Safety Report 7968211-6 (Version None)
Quarter: 2011Q4

REPORT INFORMATION
  Report Type: 
  Country: None (occurrence: None)
  Receive Date: 20111209
  Receipt Date: 20111130
  Transmission Date: 20120403
  Serious: Yes (Other)
  Sender: FDA-Public Use
  Company Number: DE-BRISTOL-MYERS SQUIBB COMPANY-16221129

PATIENT
  Age: 76 Year
  Sex: Female
  Weight: 60 kg

DRUGS (10)
  1. TAXOL [Suspect]
     Indication: BREAST CANCER
     Dosage: 1 DF= 80MG/QM
  2. CYCLOPHOSPHAMIDE [Suspect]
     Dosage: 1 DF= 600MG/QM CYCLE DURN: 21 DAYS
  3. UROMITEXAN [Suspect]
     Route: 048
  4. FENISTIL [Suspect]
     Dosage: 1 DF= AMPOULE
     Route: 042
  5. EMEND [Suspect]
     Dosage: ALSO 80MG 10MAR11, 17FEB11.
     Route: 048
  6. ZOFRAN [Suspect]
     Dosage: ON 100ML SODIUM CHLORIDE SLOUTIN
     Route: 042
  7. RANITIDINE [Suspect]
     Dosage: 1 DF= 1 AMPOULE
     Route: 042
  8. ALOXI [Suspect]
     Dosage: 1DF= 1AMP IN 100 ML SODIUM CHLORIDE 0.9%
  9. EPIRUBICIN [Suspect]
     Dosage: 90 MG/QM BSA CYCLE DURN: 21 DAYS
     Route: 042
  10. FORTECORTIN [Suspect]
     Route: 042

REACTIONS (9)
  - PALMAR-PLANTAR ERYTHRODYSAESTHESIA SYNDROME [None]
  - POLYNEUROPATHY [None]
  - DRY MOUTH [None]
  - ONYCHOCLASIS [None]
  - MUSCLE SPASMS [None]
  - POLLAKIURIA [None]
  - DYSGEUSIA [None]
  - SKIN STRIAE [None]
  - WEIGHT DECREASED [None]
